FAERS Safety Report 4518088-6 (Version None)
Quarter: 2004Q4

REPORT INFORMATION
  Report Type: 
  Country: None (occurrence: None)
  Receive Date: 20041130
  Receipt Date: 20041112
  Transmission Date: 20050328
  Serious: Yes (Life-Threatening)
  Sender: FDA-Public Use
  Company Number: 9295

PATIENT
  Age: 25 Year
  Sex: Female

DRUGS (2)
  1. ATRACURIUM BESYLATE [Suspect]
  2. SUCCINYLCHOLINE CHLORIDE [Suspect]
     Indication: GENERAL ANAESTHESIA
     Dosage: 100 MG FREQ, IV
     Route: 042
     Dates: start: 20040705, end: 20040705

REACTIONS (2)
  - ANAPHYLACTIC REACTION [None]
  - ELECTROMECHANICAL DISSOCIATION [None]
